FAERS Safety Report 9498491 (Version 2)
Quarter: 2013Q3

REPORT INFORMATION
  Report Type: Spontaneous
  Country: DE (occurrence: DE)
  Receive Date: 20130904
  Receipt Date: 20130918
  Transmission Date: 20140515
  Serious: Yes (Death, Other)
  Sender: FDA-Public Use
  Company Number: DE-BRISTOL-MYERS SQUIBB COMPANY-19244524

PATIENT
  Sex: Female

DRUGS (1)
  1. IPILIMUMAB [Suspect]
     Dosage: RECEIVED LAST CYCLE ON 10-JUL-2013

REACTIONS (3)
  - Sepsis [Fatal]
  - Metastases to central nervous system [Unknown]
  - Diarrhoea [Unknown]
